FAERS Safety Report 16998719 (Version 2)
Quarter: 2020Q1

REPORT INFORMATION
  Report Type: Report from Study
  Country: ES (occurrence: ES)
  Receive Date: 20191106
  Receipt Date: 20200123
  Transmission Date: 20200409
  Serious: Yes (Other)
  Sender: FDA-Public Use
  Company Number: ES-TEVA-2019-ES-1131045

PATIENT
  Age: 91 Year
  Sex: Male

DRUGS (8)
  1. LEVOFLOXACINO (2791A) [Suspect]
     Active Substance: LEVOFLOXACIN
     Indication: RESPIRATORY TRACT INFECTION
     Dosage: UNSPECIFIED
     Route: 048
     Dates: start: 20180202, end: 20180209
  2. METFORMINA (1359A) [Concomitant]
     Active Substance: METFORMIN HYDROCHLORIDE
  3. FOSTER [Concomitant]
     Active Substance: BECLOMETHASONE\FORMOTEROL
  4. PARACETAMOL (12A) [Concomitant]
     Active Substance: ACETAMINOPHEN
  5. ENALAPRIL (2142A) [Concomitant]
     Active Substance: ENALAPRIL
  6. VENTOLIN [Concomitant]
     Active Substance: ALBUTEROL SULFATE
  7. SEGURIL [Concomitant]
     Active Substance: FUROSEMIDE
  8. SPIRIVA [Concomitant]
     Active Substance: TIOTROPIUM BROMIDE MONOHYDRATE

REACTIONS (4)
  - Vomiting [Recovering/Resolving]
  - Renal failure [Recovering/Resolving]
  - Diarrhoea [Recovering/Resolving]
  - Nausea [Recovering/Resolving]

NARRATIVE: CASE EVENT DATE: 201802
